FAERS Safety Report 20807454 (Version 6)
Quarter: 2022Q4

REPORT INFORMATION
  Report Type: Spontaneous
  Country: GB (occurrence: GB)
  Receive Date: 20220510
  Receipt Date: 20221117
  Transmission Date: 20230113
  Serious: Yes (Hospitalization, Other)
  Sender: FDA-Public Use
  Company Number: GB-ABBVIE-22K-167-4362231-00

PATIENT
  Age: 0 Year
  Sex: Male

DRUGS (2)
  1. TESTOSTERONE [Suspect]
     Active Substance: TESTOSTERONE
     Indication: Product used for unknown indication
     Dosage: 16.2 MILLIGRAM PER GRAM, 91504
     Route: 061
  2. TESTOSTERONE [Suspect]
     Active Substance: TESTOSTERONE
     Indication: Product used for unknown indication
     Dosage: 16.2 MILLIGRAM PER GRAM, 91504
     Route: 061

REACTIONS (16)
  - Growth accelerated [Recovered/Resolved with Sequelae]
  - Hair growth abnormal [Recovering/Resolving]
  - Precocious puberty [Not Recovered/Not Resolved]
  - Spontaneous penile erection [Not Recovered/Not Resolved]
  - Bone density increased [Not Recovered/Not Resolved]
  - Genitals enlarged [Recovering/Resolving]
  - Blood testosterone increased [Recovered/Resolved with Sequelae]
  - Personality disorder [Unknown]
  - Psychomotor hyperactivity [Unknown]
  - Muscle mass [Unknown]
  - Bone density abnormal [Unknown]
  - Erectile dysfunction [Unknown]
  - Body height abnormal [Unknown]
  - Accidental poisoning [Unknown]
  - Accidental exposure to product by child [Unknown]
  - Pseudoprecocious puberty [Recovered/Resolved with Sequelae]

NARRATIVE: CASE EVENT DATE: 20200101
